FAERS Safety Report 8837467 (Version 2)
Quarter: 2012Q4

REPORT INFORMATION
  Report Type: 
  Country: US (occurrence: US)
  Receive Date: 20121012
  Receipt Date: 20121024
  Transmission Date: 20130627
  Serious: No
  Sender: FDA-Public Use
  Company Number: US-PFIZER INC-2012248055

PATIENT
  Age: 72 Year
  Sex: Male
  Weight: 81.63 kg

DRUGS (5)
  1. SUTENT [Suspect]
     Indication: METASTATIC RENAL CELL CARCINOMA
     Dosage: 50 mg, cyclic
     Dates: start: 20120918, end: 20121015
  2. PRADAXA [Concomitant]
     Dosage: UNK
  3. AMLODIPINE [Concomitant]
     Dosage: UNK
  4. LOVASTATIN [Concomitant]
     Dosage: UNK
  5. ASPIRIN [Concomitant]
     Dosage: 81 mg

REACTIONS (10)
  - Pruritus [Unknown]
  - Yellow skin [Unknown]
  - Nausea [Unknown]
  - Fatigue [Unknown]
  - Weight decreased [Unknown]
  - Vomiting [Recovered/Resolved]
  - Decreased appetite [Unknown]
  - Dysgeusia [Unknown]
  - Malaise [Unknown]
  - Anxiety [Unknown]
